FAERS Safety Report 22228876 (Version 2)
Quarter: 2023Q2

REPORT INFORMATION
  Report Type: Spontaneous
  Country: US (occurrence: None)
  Receive Date: 20230419
  Receipt Date: 20230511
  Transmission Date: 20230721
  Serious: No
  Sender: FDA-Public Use
  Company Number: 2023A069512

PATIENT
  Sex: Female
  Weight: 81.6 kg

DRUGS (1)
  1. BYDUREON BCISE [Suspect]
     Active Substance: EXENATIDE
     Indication: Type 2 diabetes mellitus
     Route: 058

REACTIONS (6)
  - Weight increased [Unknown]
  - Device leakage [Unknown]
  - Incorrect dose administered by device [Unknown]
  - Product use issue [Unknown]
  - Device malfunction [Unknown]
  - Needle issue [Unknown]
